FAERS Safety Report 6722586-4 (Version None)
Quarter: 2010Q2

REPORT INFORMATION
  Report Type: 
  Country: None (occurrence: None)
  Receive Date: 20100512
  Receipt Date: 20100505
  Transmission Date: 20101027
  Serious: Yes (Hospitalization)
  Sender: FDA-Public Use
  Company Number: AU-PFIZER INC-2010045317

PATIENT
  Age: 51 Year
  Sex: Male

DRUGS (7)
  1. VIBRAMYCIN [Suspect]
     Indication: UPPER RESPIRATORY TRACT INFECTION
     Dosage: TWO TABLETS IN A SINGLE DOSE
     Route: 048
     Dates: start: 20100409, end: 20100409
  2. VIBRAMYCIN [Suspect]
     Indication: PHARYNGITIS
  3. VIBRAMYCIN [Suspect]
     Indication: LOWER RESPIRATORY TRACT INFECTION
  4. PHYSEPTONE [Concomitant]
     Indication: PAIN
     Dosage: 10MG 2.5 MORNING AND NIGHT
     Route: 048
  5. GABAPENTIN [Concomitant]
     Indication: PAIN
     Dosage: 100 MG, 3X/DAY
     Route: 048
  6. CELEBREX [Concomitant]
     Indication: PAIN
     Dosage: 300 MG IN THE MORNING
     Route: 048
  7. ZOLOFT [Concomitant]
     Indication: DEPRESSION
     Dosage: 100 MG IN THE MORNING
     Route: 048

REACTIONS (5)
  - FEELING COLD [None]
  - HEART RATE INCREASED [None]
  - HYPERHIDROSIS [None]
  - PALLOR [None]
  - SOMNOLENCE [None]
